FAERS Safety Report 9259930 (Version 1)
Quarter: 2013Q2

REPORT INFORMATION
  Report Type: Report from Study
  Country: FR (occurrence: FR)
  Receive Date: 20130429
  Receipt Date: 20130429
  Transmission Date: 20140414
  Serious: Yes (Hospitalization)
  Sender: FDA-Public Use
  Company Number: FR-BAYER-2012-061978

PATIENT
  Age: 40 Year
  Sex: Female

DRUGS (3)
  1. EXTAVIA [Suspect]
     Indication: MULTIPLE SCLEROSIS
     Dosage: 0.75 ML, QOD
     Route: 065
     Dates: start: 20120524
  2. EXTAVIA [Suspect]
     Indication: MULTIPLE SCLEROSIS
     Dosage: 1 ML, QOD
     Route: 065
  3. EXTAVIA [Suspect]
     Indication: MULTIPLE SCLEROSIS
     Dosage: 1 ML, QD
     Route: 065

REACTIONS (15)
  - Multiple sclerosis relapse [Recovered/Resolved]
  - Tremor [Recovered/Resolved]
  - Burning sensation [Recovered/Resolved]
  - Pain in extremity [Recovered/Resolved]
  - Fatigue [Recovered/Resolved]
  - Multiple sclerosis [None]
  - Migraine [None]
  - Musculoskeletal stiffness [None]
  - Generalised oedema [None]
  - Influenza like illness [Not Recovered/Not Resolved]
  - Rhinitis [Not Recovered/Not Resolved]
  - Headache [Not Recovered/Not Resolved]
  - Injection site pain [Not Recovered/Not Resolved]
  - Weight increased [Not Recovered/Not Resolved]
  - Injection site haematoma [Not Recovered/Not Resolved]
